FAERS Safety Report 6786172-2 (Version None)
Quarter: 2010Q2

REPORT INFORMATION
  Report Type: 
  Country: None (occurrence: None)
  Receive Date: 20100622
  Receipt Date: 20100622
  Transmission Date: 20101027
  Serious: Yes (Life-Threatening)
  Sender: FDA-Public Use
  Company Number: None

PATIENT
  Age: 52 Year
  Sex: Female

DRUGS (1)
  1. CELEBREX [Suspect]
     Dosage: TWICE A DAY ORALLY (MONTHS)
     Route: 048
     Dates: start: 20100315, end: 20100525

REACTIONS (1)
  - DEEP VEIN THROMBOSIS [None]
